FAERS Safety Report 9988754 (Version 1)
Quarter: 2014Q1

REPORT INFORMATION
  Report Type: Spontaneous
  Country: AU (occurrence: AU)
  Receive Date: 20140310
  Receipt Date: 20140310
  Transmission Date: 20141002
  Serious: Yes (Hospitalization)
  Sender: FDA-Public Use
  Company Number: AU-009507513-1403AUS003015

PATIENT
  Age: 57 Year
  Sex: Female

DRUGS (8)
  1. TINADERM EXTRA [Suspect]
     Dosage: UNK
     Dates: start: 20131104
  2. CANDESARTAN CILEXETIL [Suspect]
     Dosage: 2 MG, UNK
     Route: 048
     Dates: start: 20131104
  3. ACETAMINOPHEN [Suspect]
     Dosage: 200 MG,DAILY
     Dates: start: 20131104
  4. PREGABALIN [Suspect]
     Dosage: 250 MG, DAILY
     Dates: start: 20131104
  5. TOPIRAMATE [Suspect]
     Dosage: 50 MG, DAILY
     Dates: end: 20131111
  6. ESOMEPRAZOLE MAGNESIUM [Concomitant]
     Dosage: 20 MG, DAILY
  7. FOLIC ACID [Concomitant]
     Dosage: 5 MG, DAILY
     Dates: start: 20131104
  8. VITAMINS (UNSPECIFIED) [Concomitant]
     Dosage: UNK
     Dates: start: 20131104

REACTIONS (1)
  - Peripheral sensory neuropathy [Not Recovered/Not Resolved]
